FAERS Safety Report 4459394-3 (Version None)
Quarter: 2004Q3

REPORT INFORMATION
  Report Type: 
  Country: None (occurrence: None)
  Receive Date: 20040927
  Receipt Date: 20011115
  Transmission Date: 20050211
  Serious: Yes (Hospitalization)
  Sender: FDA-Public Use
  Company Number: US-GLAXOSMITHKLINE-A0420270B

PATIENT
  Age: 28 Year
  Sex: Female

DRUGS (3)
  1. IMITREX [Suspect]
     Indication: MIGRAINE
     Route: 045
     Dates: start: 19991007, end: 19991007
  2. BC MULTI-SYMPTOM ALLERGY SINUS COLD [Concomitant]
     Route: 048
     Dates: start: 19991007
  3. BC SINUS COLD (UNSPEC.)-PHENYLPROPANOLAMINE [Concomitant]
     Route: 048
     Dates: start: 19991007

REACTIONS (4)
  - CONVULSION [None]
  - ECLAMPSIA [None]
  - HYPERTENSION [None]
  - PERIVENTRICULAR LEUKOMALACIA [None]
